FAERS Safety Report 9278507 (Version 1)
Quarter: 2013Q2

REPORT INFORMATION
  Report Type: Spontaneous
  Country: US (occurrence: US)
  Receive Date: 20130508
  Receipt Date: 20130508
  Transmission Date: 20140414
  Serious: No
  Sender: FDA-Public Use
  Company Number: US-009507513-1304USA017349

PATIENT
  Sex: Female
  Weight: 59.86 kg

DRUGS (2)
  1. NUVARING [Suspect]
     Indication: CONTRACEPTION
     Dosage: UNK
     Route: 067
     Dates: start: 20081203, end: 20130206
  2. NUVARING [Suspect]
     Dosage: UNK
     Route: 067
     Dates: start: 20110223, end: 20130206

REACTIONS (11)
  - Deep vein thrombosis [Unknown]
  - Cervical dysplasia [Recovered/Resolved]
  - Cervical dysplasia [Not Recovered/Not Resolved]
  - Papilloma viral infection [Unknown]
  - Urinary tract infection [Unknown]
  - Fungal infection [Unknown]
  - Urinary tract infection [Unknown]
  - Skin papilloma [Unknown]
  - Vulvovaginal burning sensation [Unknown]
  - Fatigue [Unknown]
  - Pharyngitis [Unknown]
